FAERS Safety Report 14378136 (Version 1)
Quarter: 2018Q1

REPORT INFORMATION
  Report Type: Spontaneous
  Country: US (occurrence: US)
  Receive Date: 20180111
  Receipt Date: 20180111
  Transmission Date: 20180509
  Serious: No
  Sender: FDA-Public Use
  Company Number: US-GALDERMA-US17001729

PATIENT
  Age: 29 Year
  Sex: Male

DRUGS (7)
  1. FINASTERIDE. [Concomitant]
     Active Substance: FINASTERIDE
     Indication: SKIN LESION
  2. EPIDUO [Suspect]
     Active Substance: ADAPALENE\BENZOYL PEROXIDE
     Indication: SKIN LESION
     Dosage: 0.1% ADAPALENE AND 2.5 % BENZOYL PEROXIDE
  3. LORATADINE. [Concomitant]
     Active Substance: LORATADINE
     Indication: SKIN LESION
  4. ARMODAFINIL. [Concomitant]
     Active Substance: ARMODAFINIL
     Indication: SKIN LESION
  5. OMEPRAZOLE. [Concomitant]
     Active Substance: OMEPRAZOLE
     Indication: SKIN LESION
  6. ESCITALOPRAM [Concomitant]
     Active Substance: ESCITALOPRAM OXALATE
     Indication: SKIN LESION
  7. FLUTICASONE PROPIONATE. [Concomitant]
     Active Substance: FLUTICASONE PROPIONATE
     Indication: SKIN LESION

REACTIONS (1)
  - Off label use [Recovered/Resolved]
